FAERS Safety Report 12284334 (Version 2)
Quarter: 2016Q2

REPORT INFORMATION
  Report Type: Spontaneous
  Country: US (occurrence: US)
  Receive Date: 20160420
  Receipt Date: 20160421
  Transmission Date: 20160815
  Serious: No
  Sender: FDA-Public Use
  Company Number: US-JNJFOC-20160327621

PATIENT
  Sex: Male
  Weight: 70.31 kg

DRUGS (1)
  1. ZYTIGA [Suspect]
     Active Substance: ABIRATERONE ACETATE
     Indication: PROSTATE CANCER
     Route: 048
     Dates: start: 201503, end: 20160329

REACTIONS (4)
  - Diarrhoea [Not Recovered/Not Resolved]
  - Blood glucose increased [Unknown]
  - Blood cholesterol increased [Unknown]
  - Toxicity to various agents [Not Recovered/Not Resolved]

NARRATIVE: CASE EVENT DATE: 2015
